FAERS Safety Report 5014453-1 (Version None)
Quarter: 2006Q2

REPORT INFORMATION
  Report Type: 
  Country: None (occurrence: None)
  Receive Date: 20060531
  Receipt Date: 20060517
  Transmission Date: 20061013
  Serious: Yes (Hospitalization)
  Sender: FDA-Public Use
  Company Number: FR-BRISTOL-MYERS SQUIBB COMPANY-13380845

PATIENT
  Age: 48 Year
  Sex: Female

DRUGS (1)
  1. ABILIFY [Suspect]
     Indication: PSYCHOTIC DISORDER
     Dosage: 15 MG FROM 01-OCT-2005 TO 01-APR-2006; 30 MG FROM 01-APR-2006 TO 25-APR-2006
     Route: 048
     Dates: start: 20051001, end: 20060425

REACTIONS (1)
  - DIABETIC KETOACIDOSIS [None]
